FAERS Safety Report 6930405-6 (Version None)
Quarter: 2010Q3

REPORT INFORMATION
  Report Type: 
  Country: None (occurrence: None)
  Receive Date: 20100818
  Receipt Date: 20100809
  Transmission Date: 20110219
  Serious: Yes (Other)
  Sender: FDA-Public Use
  Company Number: US-JNJFOC-20100805672

PATIENT
  Sex: Female
  Weight: 61.24 kg

DRUGS (13)
  1. FENTANYL CITRATE [Suspect]
     Indication: SCLERODERMA
     Route: 062
  2. FENTANYL CITRATE [Suspect]
     Indication: SYSTEMIC LUPUS ERYTHEMATOSUS
     Route: 062
  3. FENTANYL CITRATE [Suspect]
     Indication: SCLERODERMA
     Route: 062
  4. FENTANYL CITRATE [Suspect]
     Indication: SYSTEMIC LUPUS ERYTHEMATOSUS
     Route: 062
  5. MAXZIDE [Concomitant]
     Indication: BLOOD PRESSURE
     Dosage: 3.75 DAILY.
     Route: 048
  6. NEXIUM [Concomitant]
     Indication: GASTROOESOPHAGEAL REFLUX DISEASE
     Route: 048
  7. NADOLOL [Concomitant]
     Indication: BLOOD PRESSURE
     Route: 048
  8. ZYRTEC [Concomitant]
     Indication: MULTIPLE ALLERGIES
     Route: 048
  9. SYNTHROID [Concomitant]
     Indication: THYROID DISORDER
     Route: 048
  10. AMBIEN [Concomitant]
     Indication: SLEEP DISORDER
     Route: 048
  11. HYOMAX [Concomitant]
     Indication: PANCREATIC DISORDER
     Dosage: AS NEEDED
     Route: 048
  12. KLOR-CON [Concomitant]
     Indication: MINERAL SUPPLEMENTATION
     Route: 048
  13. PLAQUENIL [Concomitant]
     Indication: SYSTEMIC LUPUS ERYTHEMATOSUS
     Route: 048

REACTIONS (3)
  - PRODUCT ADHESION ISSUE [None]
  - SYSTEMIC LUPUS ERYTHEMATOSUS [None]
  - WRONG TECHNIQUE IN DRUG USAGE PROCESS [None]
